FAERS Safety Report 24336150 (Version 1)
Quarter: 2024Q3

REPORT INFORMATION
  Report Type: Report from Study
  Country: ID (occurrence: ID)
  Receive Date: 20240919
  Receipt Date: 20240919
  Transmission Date: 20241017
  Serious: No
  Sender: ROCHE
  Company Number: ID-ROCHE-3427261

PATIENT
  Age: 61 Year
  Sex: Female

DRUGS (14)
  1. OSELTAMIVIR [Suspect]
     Active Substance: OSELTAMIVIR
     Indication: COVID-19
     Route: 065
  2. SODIUM CHLORIDE [Concomitant]
     Active Substance: SODIUM CHLORIDE
  3. LANSOPRAZOLE [Concomitant]
     Active Substance: LANSOPRAZOLE
  4. SUKRALFAT [Concomitant]
  5. ZINC [Concomitant]
     Active Substance: ZINC
  6. AZITROMISIN [Concomitant]
  7. POVIDONE-IODINE [Concomitant]
     Active Substance: POVIDONE-IODINE
  8. VITAMINS [Concomitant]
     Active Substance: VITAMINS
  9. ONDANSETRON [Concomitant]
     Active Substance: ONDANSETRON
  10. LORAZEPAM [Concomitant]
     Active Substance: LORAZEPAM
  11. HEPARIN [Concomitant]
     Active Substance: HEPARIN SODIUM
  12. MICROLAX [Concomitant]
  13. LEVOFLOKSASIN [Concomitant]
  14. REBAMIPIDE [Concomitant]
     Active Substance: REBAMIPIDE

REACTIONS (4)
  - Off label use [Unknown]
  - Nausea [Unknown]
  - Constipation [Unknown]
  - Insomnia [Unknown]
